FAERS Safety Report 12961602 (Version 3)
Quarter: 2017Q1

REPORT INFORMATION
  Report Type: Spontaneous
  Country: US (occurrence: US)
  Receive Date: 20161121
  Receipt Date: 20170215
  Transmission Date: 20170428
  Serious: No
  Sender: FDA-Public Use
  Company Number: US-INCYTE CORPORATION-2016IN007264

PATIENT
  Age: 75 Year
  Sex: Female

DRUGS (2)
  1. JAKAFI [Suspect]
     Active Substance: RUXOLITINIB
     Dosage: 10 MG, BID
     Route: 048
     Dates: start: 20170110
  2. JAKAFI [Suspect]
     Active Substance: RUXOLITINIB
     Indication: MYELOFIBROSIS
     Dosage: 20 MG, BID (Q 12 HOURS)
     Route: 048
     Dates: start: 20160818

REACTIONS (11)
  - Abdominal pain [Unknown]
  - Fall [Not Recovered/Not Resolved]
  - Sneezing [Not Recovered/Not Resolved]
  - Eye contusion [Recovered/Resolved]
  - Pruritus [Recovering/Resolving]
  - Increased tendency to bruise [Recovered/Resolved]
  - Contusion [Recovered/Resolved]
  - Fatigue [Unknown]
  - Ocular hyperaemia [Not Recovered/Not Resolved]
  - White blood cell count increased [Unknown]
  - Night sweats [Recovering/Resolving]

NARRATIVE: CASE EVENT DATE: 2016
